FAERS Safety Report 5720473-1 (Version None)
Quarter: 2008Q2

REPORT INFORMATION
  Report Type: 
  Country: None (occurrence: None)
  Receive Date: 20080428
  Receipt Date: 20080416
  Transmission Date: 20081010
  Serious: Yes (Hospitalization, Other)
  Sender: FDA-Public Use
  Company Number: US-PFIZER INC-2008034914

PATIENT
  Sex: Female
  Weight: 68.181 kg

DRUGS (7)
  1. LYRICA [Suspect]
     Indication: FIBROMYALGIA
  2. SYNTHROID [Concomitant]
     Indication: HYPOTHYROIDISM
  3. BENICAR [Concomitant]
     Indication: HYPERTENSION
  4. VALIUM [Concomitant]
  5. VITAMINS [Concomitant]
  6. SENOKOT [Concomitant]
  7. TRAMADOL HCL [Concomitant]

REACTIONS (13)
  - APHASIA [None]
  - FALL [None]
  - LOCAL SWELLING [None]
  - OEDEMA PERIPHERAL [None]
  - PSYCHOMOTOR SKILLS IMPAIRED [None]
  - RESTLESS LEGS SYNDROME [None]
  - RESTLESSNESS [None]
  - RESUSCITATION [None]
  - SYNCOPE [None]
  - TRAUMATIC BRAIN INJURY [None]
  - TUNNEL VISION [None]
  - URINARY INCONTINENCE [None]
  - VOMITING [None]
